FAERS Safety Report 16184864 (Version 14)
Quarter: 2022Q1

REPORT INFORMATION
  Report Type: Spontaneous
  Country: US (occurrence: US)
  Receive Date: 20190411
  Receipt Date: 20220221
  Transmission Date: 20220423
  Serious: Yes (Other)
  Sender: FDA-Public Use
  Company Number: US-PFIZER INC-2019155766

PATIENT
  Age: 61 Year
  Sex: Female

DRUGS (4)
  1. XELJANZ [Suspect]
     Active Substance: TOFACITINIB CITRATE
     Indication: Colitis ulcerative
     Dosage: 10 MG, 2X/DAY
     Route: 048
     Dates: start: 201812
  2. XELJANZ [Suspect]
     Active Substance: TOFACITINIB CITRATE
     Dosage: 10 MG, 1X/DAY
     Route: 048
     Dates: start: 201812
  3. XELJANZ [Suspect]
     Active Substance: TOFACITINIB CITRATE
     Dosage: 10 MG, 2X/DAY (XELJANZ 10MG BY MOUTH TWICE DAILY FOR 16 WEEKS, THEN DECREASE TO 5MG TWICE DAILY)
     Route: 048
     Dates: start: 2019
  4. XELJANZ [Suspect]
     Active Substance: TOFACITINIB CITRATE
     Dosage: 10 MG, 2X/DAY
     Route: 048
     Dates: start: 202104

REACTIONS (21)
  - Clostridium difficile infection [Unknown]
  - Colitis ulcerative [Recovering/Resolving]
  - Rectal haemorrhage [Unknown]
  - Malaise [Unknown]
  - Abdominal adhesions [Not Recovered/Not Resolved]
  - Hunger [Unknown]
  - Fatigue [Not Recovered/Not Resolved]
  - Alopecia [Not Recovered/Not Resolved]
  - Condition aggravated [Not Recovered/Not Resolved]
  - C-reactive protein increased [Unknown]
  - Decreased appetite [Unknown]
  - Condition aggravated [Recovering/Resolving]
  - Diarrhoea [Recovering/Resolving]
  - Sleep disorder [Unknown]
  - Middle insomnia [Unknown]
  - Dry mouth [Unknown]
  - Thirst [Unknown]
  - Weight increased [Unknown]
  - Depression [Recovering/Resolving]
  - Product dose omission in error [Unknown]
  - Off label use [Unknown]
